FAERS Safety Report 4787503-5 (Version None)
Quarter: 2005Q4

REPORT INFORMATION
  Report Type: 
  Country: None (occurrence: None)
  Receive Date: 20051003
  Receipt Date: 20050913
  Transmission Date: 20060501
  Serious: Yes (Death)
  Sender: FDA-Public Use
  Company Number: DSA_27102_2005

PATIENT
  Age: 59 Year
  Sex: Male

DRUGS (1)
  1. ATIVAN [Suspect]
     Dosage: DF

REACTIONS (2)
  - FALL [None]
  - INJURY [None]
